FAERS Safety Report 9222147 (Version 1)
Quarter: 2013Q2

REPORT INFORMATION
  Report Type: Spontaneous
  Country: JP (occurrence: JP)
  Receive Date: 20130410
  Receipt Date: 20130410
  Transmission Date: 20140414
  Serious: Yes (Other)
  Sender: FDA-Public Use
  Company Number: JP-ASTELLAS-2013JP004757

PATIENT
  Age: 73 Year
  Sex: Male
  Weight: 45 kg

DRUGS (6)
  1. PROGRAF [Suspect]
     Indication: DERMATOMYOSITIS
     Route: 065
  2. PROGRAF [Suspect]
     Route: 065
  3. PROGRAF [Suspect]
     Dosage: 4 MG, UNKNOWN/D
     Route: 065
  4. MEROPENEM [Concomitant]
     Indication: SEPSIS
     Dosage: 2 G, UNKNOWN/D
     Route: 065
  5. PREDNISOLONE [Concomitant]
     Indication: DERMATOMYOSITIS
     Dosage: 50 MG, UNKNOWN/D
     Route: 065
  6. VANCOMYCIN [Concomitant]
     Indication: PSEUDOMEMBRANOUS COLITIS
     Dosage: 0.5 G, UNKNOWN/D
     Route: 065

REACTIONS (2)
  - Drug ineffective for unapproved indication [Unknown]
  - Dermatomyositis [Unknown]
